FAERS Safety Report 7801477-1 (Version None)
Quarter: 2011Q4

REPORT INFORMATION
  Report Type: 
  Country: None (occurrence: None)
  Receive Date: 20111006
  Receipt Date: 20111006
  Transmission Date: 20120403
  Serious: Yes (Hospitalization)
  Sender: FDA-Public Use
  Company Number: None

PATIENT
  Age: 88 Year
  Sex: Male
  Weight: 77.2 kg

DRUGS (4)
  1. CLOPIDOGREL [Suspect]
     Indication: SURGERY
     Dosage: 75 MG EVERY DAY PO
     Route: 048
     Dates: start: 20110328, end: 20110802
  2. CLOPIDOGREL [Suspect]
     Indication: CARDIOVASCULAR DISORDER
     Dosage: 75 MG EVERY DAY PO
     Route: 048
     Dates: start: 20110328, end: 20110802
  3. ASPIRIN [Suspect]
     Indication: SURGERY
     Dosage: 325 MG EVERY DAY PO
     Route: 048
     Dates: start: 20110328, end: 20110802
  4. ASPIRIN [Suspect]
     Indication: CARDIOVASCULAR DISORDER
     Dosage: 325 MG EVERY DAY PO
     Route: 048
     Dates: start: 20110328, end: 20110802

REACTIONS (4)
  - UNEVALUABLE EVENT [None]
  - ANAEMIA [None]
  - MELAENA [None]
  - HAEMORRHAGE [None]
